FAERS Safety Report 21632078 (Version 1)
Quarter: 2022Q4

REPORT INFORMATION
  Report Type: Spontaneous
  Country: JP (occurrence: JP)
  Receive Date: 20221123
  Receipt Date: 20221123
  Transmission Date: 20230113
  Serious: Yes (Other)
  Sender: FDA-Public Use
  Company Number: JP-SUN PHARMACEUTICAL INDUSTRIES LTD-2022RR-364908

PATIENT
  Age: 43 Year
  Sex: Male

DRUGS (7)
  1. CAPECITABINE [Suspect]
     Active Substance: CAPECITABINE
     Indication: Rectal cancer
     Dosage: 2000 MILLIGRAM/SQ. METER, DAYS 1-14, EVERY 3 WEEKS
     Route: 048
  2. OXALIPLATIN [Suspect]
     Active Substance: OXALIPLATIN
     Indication: Rectal cancer
     Dosage: 130 MILLIGRAM/SQ. METER
     Route: 065
  3. LEUCOVORIN CALCIUM [Suspect]
     Active Substance: LEUCOVORIN CALCIUM
     Indication: Rectal cancer
     Dosage: TWO COURSES
     Route: 065
  4. IRINOTECAN [Suspect]
     Active Substance: IRINOTECAN
     Indication: Rectal cancer
     Dosage: TWO COURSES
     Route: 065
  5. BEVACIZUMAB [Suspect]
     Active Substance: BEVACIZUMAB
     Indication: Rectal cancer
     Dosage: 7.5 MILLIGRAM/KILOGRAM
     Route: 065
  6. FLUOROURACIL [Suspect]
     Active Substance: FLUOROURACIL
     Indication: Rectal cancer
     Dosage: UNK
     Route: 065
  7. AFLIBERCEPT [Suspect]
     Active Substance: AFLIBERCEPT
     Indication: Rectal cancer
     Dosage: UNK
     Route: 065

REACTIONS (4)
  - Venoocclusive liver disease [Unknown]
  - Condition aggravated [Unknown]
  - Disease progression [Unknown]
  - Disease recurrence [Unknown]
